FAERS Safety Report 10695517 (Version 3)
Quarter: 2015Q2

REPORT INFORMATION
  Report Type: Spontaneous
  Country: US (occurrence: US)
  Receive Date: 20150107
  Receipt Date: 20150528
  Transmission Date: 20150821
  Serious: Yes (Hospitalization, Other)
  Sender: FDA-Public Use
  Company Number: US-PFIZER INC-2015003145

PATIENT
  Age: 42 Year
  Sex: Male

DRUGS (4)
  1. TESTOSTERONE CIPIONATE [Suspect]
     Active Substance: TESTOSTERONE
     Indication: ROUTINE HEALTH MAINTENANCE
     Dosage: UNK, MONTHLY
     Dates: start: 2000, end: 2013
  2. TESTOSTERONE CIPIONATE [Suspect]
     Active Substance: TESTOSTERONE
     Indication: HORMONE REPLACEMENT THERAPY
  3. DEPO-TESTOSTERONE [Suspect]
     Active Substance: TESTOSTERONE CYPIONATE
     Indication: BLOOD TESTOSTERONE DECREASED
     Dosage: UNK
     Dates: start: 1989, end: 20131223
  4. TESTOSTERONE CIPIONATE [Suspect]
     Active Substance: TESTOSTERONE
     Indication: BLOOD TESTOSTERONE DECREASED
     Dosage: UNK
     Dates: start: 1989, end: 20131223

REACTIONS (3)
  - Deep vein thrombosis [Unknown]
  - Depression [Unknown]
  - Thrombosis [Unknown]

NARRATIVE: CASE EVENT DATE: 2005
